FAERS Safety Report 8555293-6 (Version None)
Quarter: 2012Q3

REPORT INFORMATION
  Report Type: 
  Country: None (occurrence: None)
  Receive Date: 20120731
  Receipt Date: 20111007
  Transmission Date: 20120928
  Serious: No
  Sender: FDA-Public Use
  Company Number: US-ASTRAZENECA-2011SE51429

PATIENT
  Sex: Female
  Weight: 111.1 kg

DRUGS (25)
  1. VISTARIL [Concomitant]
  2. LANTUS [Concomitant]
  3. NOVOLIN 70/30 [Concomitant]
  4. VICODIN [Concomitant]
  5. SEROQUEL XR [Suspect]
     Indication: BIPOLAR DISORDER
     Route: 048
     Dates: start: 20110719
  6. LASIX [Concomitant]
  7. METFORMIN HYDROCHLORIDE [Concomitant]
  8. DARVON [Concomitant]
  9. PROPRANOLOL [Concomitant]
  10. NITROGLYCERIN [Concomitant]
  11. TRAZODONE HCL [Concomitant]
  12. WELLBUTRIN XL [Concomitant]
  13. STADOL [Concomitant]
  14. NEXIUM [Concomitant]
  15. LAMICTAL [Concomitant]
  16. POTASSIUM CHLORIDE [Concomitant]
  17. SYNTHROID [Concomitant]
  18. IMDUR [Concomitant]
  19. ACYCLOVIR [Concomitant]
  20. MULTI-VITAMIN [Concomitant]
  21. COLACE [Concomitant]
  22. TYLENOL (CAPLET) [Concomitant]
  23. EFFEXOR [Concomitant]
  24. FORTRATIDONE [Concomitant]
  25. FLUCORT [Concomitant]

REACTIONS (1)
  - FORMICATION [None]
